FAERS Safety Report 9026741 (Version 1)
Quarter: 2013Q1

REPORT INFORMATION
  Report Type: Spontaneous
  Country: US (occurrence: None)
  Receive Date: 20130108
  Receipt Date: 20130108
  Transmission Date: 20140127
  Serious: Yes (Other)
  Sender: FDA-Public Use
  Company Number: 2013ECR000001

PATIENT
  Age: 34 Year
  Sex: Male

DRUGS (2)
  1. ZOLPIDEM TARTRATE IMMEDIATE RELEASE [Suspect]
     Indication: INSOMNIA
     Dosage: 100 - 150 MG ORALLY
     Route: 048
  2. LITHIUM [Concomitant]

REACTIONS (9)
  - Grand mal convulsion [None]
  - Drug abuse [None]
  - Alcohol use [None]
  - Vision blurred [None]
  - Headache [None]
  - Anxiety [None]
  - Feeling jittery [None]
  - Drug dependence [None]
  - Insomnia [None]
